FAERS Safety Report 7301684-0 (Version None)
Quarter: 2011Q1

REPORT INFORMATION
  Report Type: 
  Country: None (occurrence: None)
  Receive Date: 20110218
  Receipt Date: 20110208
  Transmission Date: 20110831
  Serious: Yes (Death, Other)
  Sender: FDA-Public Use
  Company Number: JP-BAYER-201013977BYL

PATIENT
  Sex: Female
  Weight: 54.8 kg

DRUGS (8)
  1. MAGNESIUM OXIDE [Concomitant]
     Indication: CONSTIPATION
     Dosage: BEFORE NEXAVAR ADMINISTRATION
     Route: 048
  2. NEXAVAR [Suspect]
     Dosage: 800 MG (DAILY DOSE), , ORAL
     Route: 048
     Dates: start: 20090721, end: 20090727
  3. NEXAVAR [Suspect]
     Indication: HEPATIC NEOPLASM MALIGNANT
     Dosage: 400 MG (DAILY DOSE), , ORAL
     Route: 048
     Dates: start: 20090715, end: 20090720
  4. MAGNESIUM OXIDE [Concomitant]
  5. PANTOSIN [Concomitant]
     Indication: CONSTIPATION
     Dosage: BEFORE NEXAVAR ADMINISTRATION
     Route: 048
  6. PANTOSIN [Concomitant]
  7. NEXAVAR [Suspect]
     Dosage: 400 MG (DAILY DOSE), , ORAL
     Route: 048
     Dates: start: 20090728, end: 20110116
  8. MIRIPLA [Concomitant]
     Dosage: 63 MG (DAILY DOSE), , INTRA-ARTERIAL
     Route: 013
     Dates: start: 20100421, end: 20100421

REACTIONS (4)
  - PLATELET COUNT DECREASED [None]
  - HEPATIC NEOPLASM MALIGNANT [None]
  - HEPATIC ENCEPHALOPATHY [None]
  - HYPERTENSION [None]
